FAERS Safety Report 5738495-3 (Version None)
Quarter: 2008Q2

REPORT INFORMATION
  Report Type: 
  Country: None (occurrence: None)
  Receive Date: 20080513
  Receipt Date: 20080430
  Transmission Date: 20081010
  Serious: Yes (Other)
  Sender: FDA-Public Use
  Company Number: 2008AL002877

PATIENT
  Age: 55 Year
  Sex: Female

DRUGS (1)
  1. DIGOXIN [Suspect]
     Indication: HEART RATE INCREASED
     Dosage: 0.25 MG DAILY PO
     Route: 048
     Dates: start: 20080101, end: 20080301

REACTIONS (8)
  - ANOREXIA [None]
  - CHILLS [None]
  - DIZZINESS [None]
  - HEADACHE [None]
  - MALAISE [None]
  - MUSCLE SPASMS [None]
  - NAUSEA [None]
  - THERAPEUTIC AGENT TOXICITY [None]
